FAERS Safety Report 8630651 (Version 2)
Quarter: 2012Q4

REPORT INFORMATION
  Report Type: 
  Country: FR (occurrence: FR)
  Receive Date: 20120622
  Receipt Date: 20121003
  Transmission Date: 20130627
  Serious: No
  Sender: FDA-Public Use
  Company Number: FR-JNJFOC-20120605961

PATIENT
  Age: 4 None
  Sex: Female

DRUGS (3)
  1. DUROGESIC [Suspect]
     Indication: PAIN
     Route: 062
  2. TETRAZEPAM [Concomitant]
     Indication: PAIN
     Route: 065
  3. LYRICA [Concomitant]
     Indication: PAIN
     Route: 065

REACTIONS (3)
  - Product quality issue [Unknown]
  - Product quality issue [Unknown]
  - Inappropriate schedule of drug administration [Unknown]
